FAERS Safety Report 16860358 (Version 2)
Quarter: 2020Q3

REPORT INFORMATION
  Report Type: Spontaneous
  Country: US (occurrence: US)
  Receive Date: 20190927
  Receipt Date: 20200818
  Transmission Date: 20201102
  Serious: Yes (Death, Hospitalization, Other)
  Sender: FDA-Public Use
  Company Number: US-GILEAD-2019-0429584

PATIENT
  Sex: Male
  Weight: 90.7 kg

DRUGS (16)
  1. VIREAD [Suspect]
     Active Substance: TENOFOVIR DISOPROXIL FUMARATE
     Indication: HIV INFECTION
     Dosage: UNK
     Route: 048
     Dates: start: 2013, end: 2016
  2. SUSTIVA [Concomitant]
     Active Substance: EFAVIRENZ
  3. HUMALOG [Concomitant]
     Active Substance: INSULIN LISPRO
  4. ATRIPLA [Suspect]
     Active Substance: EFAVIRENZ\EMTRICITABINE\TENOFOVIR DISOPROXIL FUMARATE
     Indication: HIV INFECTION
     Dosage: UNK
     Route: 048
     Dates: start: 2015, end: 2017
  5. ACETAMINOPHEN. [Concomitant]
     Active Substance: ACETAMINOPHEN
  6. CALCIUM GLUCONATE. [Concomitant]
     Active Substance: CALCIUM GLUCONATE
  7. DONEPEZIL. [Concomitant]
     Active Substance: DONEPEZIL
  8. OMEPRAZOLE. [Concomitant]
     Active Substance: OMEPRAZOLE
  9. APTIVUS [Concomitant]
     Active Substance: TIPRANAVIR
  10. FERROUS SULFATE. [Concomitant]
     Active Substance: FERROUS SULFATE
  11. LOVASTATIN. [Concomitant]
     Active Substance: LOVASTATIN
  12. METOPROLOL. [Concomitant]
     Active Substance: METOPROLOL
  13. EPIVIR [Concomitant]
     Active Substance: LAMIVUDINE
  14. LISINOPRIL. [Concomitant]
     Active Substance: LISINOPRIL
  15. CALCIUM [Concomitant]
     Active Substance: CALCIUM
  16. BISACODYL. [Concomitant]
     Active Substance: BISACODYL

REACTIONS (11)
  - Chronic kidney disease [Recovered/Resolved]
  - Renal failure [Fatal]
  - Emotional distress [Not Recovered/Not Resolved]
  - Anhedonia [Not Recovered/Not Resolved]
  - Suicidal ideation [Unknown]
  - Pain [Not Recovered/Not Resolved]
  - Bone density decreased [Recovered/Resolved]
  - Economic problem [Not Recovered/Not Resolved]
  - Anxiety [Not Recovered/Not Resolved]
  - Multiple injuries [Not Recovered/Not Resolved]
  - Depression [Unknown]

NARRATIVE: CASE EVENT DATE: 2014
